FAERS Safety Report 9260657 (Version 1)
Quarter: 2013Q2

REPORT INFORMATION
  Report Type: Report from Study
  Country: US (occurrence: US)
  Receive Date: 20130429
  Receipt Date: 20130429
  Transmission Date: 20140414
  Serious: Yes (Hospitalization)
  Sender: FDA-Public Use
  Company Number: US-ACTELION-A-NJ2011-55399

PATIENT
  Age: 46 Year
  Sex: Female

DRUGS (2)
  1. VELETRI [Suspect]
     Indication: PULMONARY ARTERIAL HYPERTENSION
     Dosage: 22.5 NG/KG, PER MIN
     Route: 041
     Dates: start: 20110203
  2. COUMADIN [Concomitant]

REACTIONS (3)
  - Hysterectomy [Recovered/Resolved]
  - Catheter site pruritus [Unknown]
  - Catheter site erythema [Unknown]
